FAERS Safety Report 5638839-7 (Version None)
Quarter: 2008Q1

REPORT INFORMATION
  Report Type: 
  Country: None (occurrence: None)
  Receive Date: 20080221
  Receipt Date: 20080221
  Transmission Date: 20080703
  Serious: Yes (Disabling)
  Sender: FDA-Public Use
  Company Number: None

PATIENT
  Sex: Male
  Weight: 104.3273 kg

DRUGS (1)
  1. LUNESTA [Suspect]
     Indication: INSOMNIA
     Dosage: 1 BEFORE BEDTIME PO
     Route: 048
     Dates: start: 20071220, end: 20071227

REACTIONS (2)
  - NO THERAPEUTIC RESPONSE [None]
  - RASH PRURITIC [None]
